FAERS Safety Report 13968277 (Version 1)
Quarter: 2017Q3

REPORT INFORMATION
  Report Type: Spontaneous
  Country: US (occurrence: US)
  Receive Date: 20170914
  Receipt Date: 20170914
  Transmission Date: 20171128
  Serious: No
  Sender: FDA-Public Use
  Company Number: US-PERRIGO-17US000471

PATIENT
  Sex: Female

DRUGS (2)
  1. MINOXIDIL. [Suspect]
     Active Substance: MINOXIDIL
     Indication: ALOPECIA
     Dosage: UNKNOWN, UNKNOWN
     Route: 061
     Dates: start: 201603, end: 201608
  2. MINOXIDIL. [Suspect]
     Active Substance: MINOXIDIL
     Dosage: UNKNOWN, UNKNOWN
     Route: 061
     Dates: start: 2016, end: 20170109

REACTIONS (2)
  - Expired product administered [Recovered/Resolved]
  - Drug effect decreased [Unknown]

NARRATIVE: CASE EVENT DATE: 2016
